FAERS Safety Report 7006636-6 (Version None)
Quarter: 2010Q3

REPORT INFORMATION
  Report Type: 
  Country: None (occurrence: None)
  Receive Date: 20100921
  Receipt Date: 20100921
  Transmission Date: 20110219
  Serious: Yes (Hospitalization)
  Sender: FDA-Public Use
  Company Number: None

PATIENT
  Age: 21 Year
  Sex: Male
  Weight: 79.4 kg

DRUGS (1)
  1. SULFAMETHOXAZOLE AND TRIMETHOPRIM [Suspect]
     Indication: CELLULITIS
     Dosage: 2 TAB BID PO
     Route: 048
     Dates: start: 20100913, end: 20100913

REACTIONS (6)
  - ABNORMAL SENSATION IN EYE [None]
  - CHILLS [None]
  - DYSPNOEA [None]
  - ERYTHEMA MULTIFORME [None]
  - RESPIRATORY DEPRESSION [None]
  - SWOLLEN TONGUE [None]
